FAERS Safety Report 4744155-8 (Version None)
Quarter: 2005Q3

REPORT INFORMATION
  Report Type: 
  Country: None (occurrence: None)
  Receive Date: 20050809
  Receipt Date: 20050727
  Transmission Date: 20060218
  Serious: No
  Sender: FDA-Public Use
  Company Number: US015710

PATIENT
  Age: 18 Month
  Sex: Male
  Weight: 12.2471 kg

DRUGS (1)
  1. ACTIQ [Suspect]
     Dosage: 1200 UG ONCE BUCCAL
     Route: 002
     Dates: start: 20050727, end: 20050727

REACTIONS (2)
  - ACCIDENTAL DRUG INTAKE BY CHILD [None]
  - SOMNOLENCE [None]
